FAERS Safety Report 24307617 (Version 3)
Quarter: 2024Q4

REPORT INFORMATION
  Report Type: Spontaneous
  Country: US (occurrence: US)
  Receive Date: 20240911
  Receipt Date: 20241105
  Transmission Date: 20250114
  Serious: No
  Sender: APOTEX
  Company Number: US-APOTEX-2024AP009836

PATIENT
  Sex: Female

DRUGS (2)
  1. MOMETASONE FUROATE [Suspect]
     Active Substance: MOMETASONE FUROATE
     Indication: Product used for unknown indication
     Dosage: 4 DOSAGE FORM, BID (2 SPRAYS IN EACH NOSTRIL TWICE A DAY)
     Route: 045
     Dates: start: 202408
  2. MOMETASONE FUROATE [Suspect]
     Active Substance: MOMETASONE FUROATE
     Dosage: 4 DOSAGE FORM, QD (2 SPRAYS IN EACH NOSTRIL ONCE A DAY)
     Route: 045
     Dates: start: 202408

REACTIONS (2)
  - Product dose omission issue [Unknown]
  - Product delivery mechanism issue [Unknown]

NARRATIVE: CASE EVENT DATE: 20240801
